FAERS Safety Report 4810993-6 (Version None)
Quarter: 2005Q4

REPORT INFORMATION
  Report Type: 
  Country: None (occurrence: None)
  Receive Date: 20051025
  Receipt Date: 20051015
  Transmission Date: 20060501
  Serious: Yes (Other)
  Sender: FDA-Public Use
  Company Number: 27786

PATIENT

DRUGS (1)
  1. ALDARA [Suspect]
     Indication: LENTIGO MALIGNA STAGE UNSPECIFIED
     Dosage: TOPICAL
     Route: 061

REACTIONS (1)
  - CUTANEOUS LUPUS ERYTHEMATOSUS [None]
